FAERS Safety Report 5718716-3 (Version None)
Quarter: 2008Q2

REPORT INFORMATION
  Report Type: 
  Country: None (occurrence: None)
  Receive Date: 20080425
  Receipt Date: 20080418
  Transmission Date: 20081010
  Serious: Yes (Hospitalization)
  Sender: FDA-Public Use
  Company Number: GR-ABBOTT-08P-066-0443707-00

PATIENT
  Sex: Female
  Weight: 50.4 kg

DRUGS (13)
  1. ZEMPLAR [Suspect]
     Indication: HYPERPARATHYROIDISM SECONDARY
     Route: 042
     Dates: start: 20070423
  2. EPOETIN BETA [Concomitant]
     Indication: DRUG USE FOR UNKNOWN INDICATION
  3. IRON DEXTRAN [Concomitant]
     Indication: DRUG USE FOR UNKNOWN INDICATION
  4. LEVOCARNITINE [Concomitant]
     Indication: DRUG USE FOR UNKNOWN INDICATION
  5. VITAMEDIN INTRAVENOUS [Concomitant]
     Indication: DRUG USE FOR UNKNOWN INDICATION
  6. TITRALAC [Concomitant]
     Indication: DRUG USE FOR UNKNOWN INDICATION
  7. FOLIC ACID [Concomitant]
     Indication: DRUG USE FOR UNKNOWN INDICATION
  8. FORSENOL [Concomitant]
     Indication: DRUG USE FOR UNKNOWN INDICATION
  9. CLOPIDOGREL [Concomitant]
     Indication: DRUG USE FOR UNKNOWN INDICATION
  10. OMEPRAZOLE [Concomitant]
     Indication: DRUG USE FOR UNKNOWN INDICATION
  11. BROMAZEPAM [Concomitant]
     Indication: DRUG USE FOR UNKNOWN INDICATION
  12. ATENOLOL [Concomitant]
     Indication: DRUG USE FOR UNKNOWN INDICATION
  13. MIRTAZAPINE [Concomitant]
     Indication: DRUG USE FOR UNKNOWN INDICATION

REACTIONS (1)
  - FOLLICULAR THYROID CANCER [None]
